FAERS Safety Report 6486356-7 (Version None)
Quarter: 2009Q4

REPORT INFORMATION
  Report Type: 
  Country: None (occurrence: None)
  Receive Date: 20091207
  Receipt Date: 20091123
  Transmission Date: 20100525
  Serious: Yes (Hospitalization)
  Sender: FDA-Public Use
  Company Number: 2009AC000211

PATIENT
  Age: 51 Year
  Sex: Male

DRUGS (31)
  1. DIGOXIN [Suspect]
     Dosage: 0.125 MG;QD;PO
     Route: 048
     Dates: start: 20080501
  2. LASIX [Concomitant]
  3. ASPIRIN [Concomitant]
  4. LORATADINE [Concomitant]
  5. MINOCIN [Concomitant]
  6. COREG [Concomitant]
  7. VITAMIN D [Concomitant]
  8. TRICOR [Concomitant]
  9. EPLERENONE [Concomitant]
  10. LYRICA [Concomitant]
  11. DIOVAN [Concomitant]
  12. PLAVIX [Concomitant]
  13. PRAVASTATIN [Concomitant]
  14. HYDROXYZINE [Concomitant]
  15. CALCIUM [Concomitant]
  16. ZELNORM [Concomitant]
  17. HYDROXYZINE [Concomitant]
  18. PLAVIX [Concomitant]
  19. PREVACID [Concomitant]
  20. INSPRA [Concomitant]
  21. LIPITOR [Concomitant]
  22. CLOTRIMAZOLEBETHAMETH CREAM [Concomitant]
  23. MINOCYCLINE [Concomitant]
  24. LEVAQUIN [Concomitant]
  25. CLARITHROMYCIN [Concomitant]
  26. NITROGLYCERIN [Concomitant]
  27. KETOROLAC TROMETHAMINE [Concomitant]
  28. ACARBOSE [Concomitant]
  29. CIPRO [Concomitant]
  30. CYCLOBENZAPRINE [Concomitant]
  31. TAMIFLU [Concomitant]

REACTIONS (23)
  - ANHEDONIA [None]
  - ANXIETY [None]
  - APNOEA [None]
  - AUTONOMIC NEUROPATHY [None]
  - BASAL CELL CARCINOMA [None]
  - BLOOD CHOLESTEROL INCREASED [None]
  - CARDIAC DISORDER [None]
  - CARDIAC FAILURE CONGESTIVE [None]
  - CARDIOACTIVE DRUG LEVEL INCREASED [None]
  - CAROTIDYNIA [None]
  - CATHETERISATION CARDIAC ABNORMAL [None]
  - CORONARY ARTERY DISEASE [None]
  - DYSPHAGIA [None]
  - ECONOMIC PROBLEM [None]
  - FATIGUE [None]
  - GLUCOSE TOLERANCE IMPAIRED [None]
  - HYPOKINESIA [None]
  - HYPOTENSION [None]
  - INJURY [None]
  - NEUROPATHY PERIPHERAL [None]
  - PAIN [None]
  - RESPIRATORY FAILURE [None]
  - SLEEP APNOEA SYNDROME [None]
